FAERS Safety Report 16058029 (Version 1)
Quarter: 2019Q1

REPORT INFORMATION
  Report Type: Spontaneous
  Country: CA (occurrence: CA)
  Receive Date: 20190311
  Receipt Date: 20190311
  Transmission Date: 20190418
  Serious: Yes (Hospitalization)
  Sender: FDA-Public Use
  Company Number: CA-ASTRAZENECA-2019SE38997

PATIENT
  Age: 5 Month
  Sex: Female
  Weight: 4.3 kg

DRUGS (1)
  1. SYNAGIS [Suspect]
     Active Substance: PALIVIZUMAB
     Indication: RESPIRATORY SYNCYTIAL VIRUS INFECTION
     Dosage: 65.0MG UNKNOWN
     Route: 030

REACTIONS (3)
  - Swelling [Recovered/Resolved]
  - Oral discharge [Recovered/Resolved]
  - Agitation [Recovered/Resolved]
